FAERS Safety Report 5033076-1 (Version None)
Quarter: 2006Q2

REPORT INFORMATION
  Report Type: 
  Country: None (occurrence: None)
  Receive Date: 20060504
  Receipt Date: 20050610
  Transmission Date: 20061013
  Serious: Yes (Hospitalization)
  Sender: FDA-Public Use
  Company Number: PHEH2005US06006

PATIENT
  Age: 27 Year
  Sex: Female

DRUGS (3)
  1. TEGRETOL [Suspect]
     Indication: BIPOLAR DISORDER
     Dosage: SEE IMAGE
     Route: 048
     Dates: start: 20050408, end: 20050414
  2. TEGRETOL [Suspect]
     Indication: BIPOLAR DISORDER
     Dosage: SEE IMAGE
     Route: 048
     Dates: start: 20050415, end: 20050427
  3. LAMICTAL [Concomitant]

REACTIONS (8)
  - BLISTER [None]
  - DYSPHAGIA [None]
  - OEDEMA MUCOSAL [None]
  - PHARYNGEAL OEDEMA [None]
  - PYREXIA [None]
  - RASH [None]
  - STEVENS-JOHNSON SYNDROME [None]
  - SWOLLEN TONGUE [None]
